FAERS Safety Report 14572923 (Version 1)
Quarter: 2018Q1

REPORT INFORMATION
  Report Type: Spontaneous
  Country: US (occurrence: US)
  Receive Date: 20180223
  Receipt Date: 20180223
  Transmission Date: 20180509
  Serious: Yes (Other)
  Sender: FDA-Public Use
  Company Number: None

PATIENT
  Age: 41 Year
  Sex: Male
  Weight: 103.05 kg

DRUGS (12)
  1. OMEPRAZOLE 40 MG DR/EC [Concomitant]
     Dates: start: 20171129
  2. FENOFIBRATE 160 MG [Concomitant]
     Active Substance: FENOFIBRATE
     Dates: start: 20160216
  3. CYCLOBENZAPRINE 10 MG [Concomitant]
     Active Substance: CYCLOBENZAPRINE
     Dates: start: 20160216
  4. PROPRANOLOL [Concomitant]
     Active Substance: PROPRANOLOL HYDROCHLORIDE
     Dates: start: 20180223
  5. ATORVASTATIN 80 MG [Concomitant]
     Active Substance: ATORVASTATIN
     Dates: start: 20160216
  6. BUPRENORPHINE-NALOXONE [Suspect]
     Active Substance: BUPRENORPHINE HYDROCHLORIDE\NALOXONE HYDROCHLORIDE
     Indication: DRUG DEPENDENCE
     Route: 060
     Dates: start: 20170711
  7. SEROQUEL [Concomitant]
     Active Substance: QUETIAPINE FUMARATE
     Dates: start: 20180126
  8. VITAMIN D2 50,000 UNIT [Concomitant]
     Dates: start: 20171206
  9. VIRT-VITE FORTE (FOLIC ACID-IT B6-VIT B12) 2.5-25-2 MG [Concomitant]
     Dates: start: 20171129
  10. MIRTAZAPINE 15 MG [Concomitant]
     Active Substance: MIRTAZAPINE
     Dates: start: 20180125
  11. IBUPROFEN 600 MG [Concomitant]
     Active Substance: IBUPROFEN
     Dates: start: 20171206
  12. LISINOPRIL 10 MG [Concomitant]
     Active Substance: LISINOPRIL
     Dates: start: 20171206

REACTIONS (7)
  - Drug screen negative [None]
  - Vomiting [None]
  - Malabsorption [None]
  - Insomnia [None]
  - Retching [None]
  - Anxiety [None]
  - Withdrawal syndrome [None]

NARRATIVE: CASE EVENT DATE: 20180223
